FAERS Safety Report 6757139-5 (Version None)
Quarter: 2010Q2

REPORT INFORMATION
  Report Type: 
  Country: None (occurrence: None)
  Receive Date: 20100605
  Receipt Date: 20100524
  Transmission Date: 20101027
  Serious: Yes (Other)
  Sender: FDA-Public Use
  Company Number: DE-ROCHE-704630

PATIENT
  Age: 68 Year
  Sex: Female

DRUGS (5)
  1. MYCOPHENOLATE MOFETIL [Suspect]
     Route: 065
  2. GLUCOCORTICOID NOS [Suspect]
     Route: 065
  3. AZATHIOPRINE [Suspect]
     Route: 065
  4. CYCLOPHOSPHAMIDE [Suspect]
     Route: 065
  5. DEXAMETHASONE [Suspect]
     Route: 065

REACTIONS (1)
  - POROKERATOSIS [None]
